FAERS Safety Report 4338297-9 (Version None)
Quarter: 2004Q2

REPORT INFORMATION
  Report Type: 
  Country: None (occurrence: None)
  Receive Date: 20040413
  Receipt Date: 20040413
  Transmission Date: 20050107
  Serious: Yes (Life-Threatening)
  Sender: FDA-Public Use
  Company Number: None

PATIENT
  Age: 46 Year
  Sex: Female
  Weight: 66.6788 kg

DRUGS (3)
  1. WELLBUTRIN SR [Suspect]
     Indication: ANXIETY
     Dosage: 150MG BID ORAL
     Route: 048
     Dates: start: 20040312, end: 20040410
  2. WELLBUTRIN SR [Suspect]
     Indication: DEPRESSION
     Dosage: 150MG BID ORAL
     Route: 048
     Dates: start: 20040312, end: 20040410
  3. WELLBUTRIN SR [Suspect]
     Indication: EX-SMOKER
     Dosage: 150MG BID ORAL
     Route: 048
     Dates: start: 20040312, end: 20040410

REACTIONS (2)
  - HYPERSENSITIVITY [None]
  - URTICARIA [None]
